FAERS Safety Report 21812615 (Version 1)
Quarter: 2023Q1

REPORT INFORMATION
  Report Type: Spontaneous
  Country: CN (occurrence: CN)
  Receive Date: 20230103
  Receipt Date: 20230103
  Transmission Date: 20230418
  Serious: Yes (Hospitalization, Other)
  Sender: FDA-Public Use
  Company Number: CN-PFIZER INC-PV202300000132

PATIENT
  Age: 38 Year
  Sex: Male
  Weight: 92 kg

DRUGS (1)
  1. CYTARABINE [Suspect]
     Active Substance: CYTARABINE
     Indication: Acute myeloid leukaemia
     Dosage: 6.5 G, 2X/DAY (EVERY 12 HOURS)
     Route: 041
     Dates: start: 20221202, end: 20221204

REACTIONS (3)
  - Myelosuppression [Recovering/Resolving]
  - Granulocytopenia [Recovering/Resolving]
  - Folliculitis [Recovering/Resolving]

NARRATIVE: CASE EVENT DATE: 20221211
